FAERS Safety Report 6367395-3 (Version None)
Quarter: 2009Q3

REPORT INFORMATION
  Report Type: 
  Country: None (occurrence: None)
  Receive Date: 20090921
  Receipt Date: 20090915
  Transmission Date: 20100115
  Serious: Yes (Congenital Anomaly)
  Sender: FDA-Public Use
  Company Number: A0806088A

PATIENT
  Sex: Male
  Weight: 3.3 kg

DRUGS (4)
  1. COMBIVIR [Suspect]
     Indication: ANTIVIRAL TREATMENT
     Dosage: 2TAB PER DAY
  2. VIRAMUNE [Suspect]
     Indication: ANTIVIRAL TREATMENT
     Dosage: 400MG PER DAY
  3. RETROVIR [Concomitant]
     Indication: ANTIVIRAL TREATMENT
     Dates: start: 20090821, end: 20090821
  4. RETROVIR [Concomitant]
     Dates: start: 20090821, end: 20090823

REACTIONS (2)
  - DRUG EXPOSURE DURING PREGNANCY [None]
  - TALIPES [None]
